FAERS Safety Report 5317798-0 (Version None)
Quarter: 2007Q2

REPORT INFORMATION
  Report Type: 
  Country: None (occurrence: None)
  Receive Date: 20070507
  Receipt Date: 20070425
  Transmission Date: 20071010
  Serious: Yes (Life-Threatening, Hospitalization, Other)
  Sender: FDA-Public Use
  Company Number: US-GENENTECH-240534

PATIENT
  Sex: Female

DRUGS (21)
  1. RITUXAN [Suspect]
     Indication: POLYMYOSITIS
     Dosage: 750 MG, SINGLE
     Dates: start: 20060612, end: 20060612
  2. RITUXAN [Suspect]
     Dosage: 750 MG, SINGLE
     Dates: start: 20060626, end: 20060626
  3. RITUXAN [Suspect]
     Dosage: 750 MG, SINGLE
     Dates: start: 20070226, end: 20070226
  4. RITUXAN [Suspect]
     Dosage: 750 MG, SINGLE
     Dates: start: 20070319, end: 20070319
  5. METHOTREXATE [Suspect]
     Indication: POLYMYOSITIS
     Dosage: 25 MG, 1/WEEK
  6. PREDNISONE TAB [Suspect]
     Indication: POLYMYOSITIS
     Dosage: 10 MG, QD
  7. SOLU-MEDROL [Concomitant]
     Indication: PREMEDICATION
     Dosage: 100 MG, UNK
  8. ANTIHISTAMINE NOS [Concomitant]
     Indication: PREMEDICATION
  9. LEUCOVORIN CALCIUM [Concomitant]
     Indication: DRUG USE FOR UNKNOWN INDICATION
     Dosage: 20 MG, 1/WEEK
  10. TYLENOL W/ CODEINE [Concomitant]
     Indication: DRUG USE FOR UNKNOWN INDICATION
     Dosage: UNK, PRN
  11. BACTRIM DS [Concomitant]
     Indication: PROPHYLAXIS
     Dosage: UNK, 3/WEEK
  12. ARANESP [Concomitant]
     Indication: IRON DEFICIENCY ANAEMIA
     Dosage: UNK, Q2W
  13. NAPROXEN [Concomitant]
     Indication: DRUG USE FOR UNKNOWN INDICATION
     Dosage: 375 MG, BID
  14. PLAQUENIL [Concomitant]
     Indication: DRUG USE FOR UNKNOWN INDICATION
     Dosage: 200 MG, BID
  15. IRON [Concomitant]
     Indication: IRON DEFICIENCY ANAEMIA
     Dosage: 160 MG, QD
  16. PRILOSEC [Concomitant]
     Indication: DRUG USE FOR UNKNOWN INDICATION
     Dosage: 20 MG, QD
  17. HYDROMORPHONE HCL [Concomitant]
     Indication: PAIN
  18. FUROSEMIDE [Concomitant]
     Indication: OEDEMA PERIPHERAL
  19. NYSTATIN [Concomitant]
     Indication: ORAL INFECTION
  20. RED BLOOD CELLS [Concomitant]
     Indication: IRON DEFICIENCY ANAEMIA
  21. PHOSPHATE BINDER [Concomitant]
     Indication: HYPOPHOSPHATAEMIA

REACTIONS (2)
  - MYCOBACTERIAL INFECTION [None]
  - SUBCUTANEOUS NODULE [None]
